FAERS Safety Report 9322456 (Version 1)
Quarter: 2013Q2

REPORT INFORMATION
  Report Type: Spontaneous
  Country: US (occurrence: US)
  Receive Date: 20130531
  Receipt Date: 20130531
  Transmission Date: 20140414
  Serious: No
  Sender: FDA-Public Use
  Company Number: US-009507513-1305USA008274

PATIENT
  Age: 25 Year
  Sex: Female

DRUGS (1)
  1. IMPLANON [Suspect]
     Indication: CONTRACEPTION
     Dosage: ^1 ROD FOR 3 WEEKS^
     Route: 059
     Dates: start: 201303

REACTIONS (3)
  - Groin pain [Unknown]
  - Metrorrhagia [Unknown]
  - Device dislocation [Unknown]
